FAERS Safety Report 5471473-0 (Version None)
Quarter: 2007Q3

REPORT INFORMATION
  Report Type: 
  Country: None (occurrence: None)
  Receive Date: 20070928
  Receipt Date: 20061109
  Transmission Date: 20080115
  Serious: No
  Sender: FDA-Public Use
  Company Number: US-BRISTOL-MYERS SQUIBB COMPANY-13572656

PATIENT
  Age: 62 Year
  Sex: Female
  Weight: 83 kg

DRUGS (7)
  1. DEFINITY [Suspect]
     Indication: STRESS ECHOCARDIOGRAM
     Route: 042
     Dates: start: 20061107, end: 20061107
  2. SODIUM CHLORIDE [Concomitant]
     Indication: STRESS ECHOCARDIOGRAM
     Route: 042
     Dates: start: 20061107, end: 20061107
  3. PANTOPRAZOLE SODIUM [Concomitant]
  4. METFORMIN [Concomitant]
  5. PROPRANOLOL [Concomitant]
  6. ATORVASTATIN CALCIUM [Concomitant]
  7. TRAMADOL HCL [Concomitant]

REACTIONS (1)
  - BACK PAIN [None]
